APPROVED DRUG PRODUCT: ONDANSETRON HYDROCHLORIDE
Active Ingredient: ONDANSETRON HYDROCHLORIDE
Strength: EQ 24MG BASE
Dosage Form/Route: TABLET;ORAL
Application: A077303 | Product #004
Applicant: CHARTWELL MOLECULES LLC
Approved: Jun 25, 2007 | RLD: No | RS: Yes | Type: RX